FAERS Safety Report 10963371 (Version 3)
Quarter: 2015Q2

REPORT INFORMATION
  Report Type: Spontaneous
  Country: US (occurrence: US)
  Receive Date: 20150327
  Receipt Date: 20150608
  Transmission Date: 20150821
  Serious: Yes (Other)
  Sender: FDA-Public Use
  Company Number: US-ASTRAZENECA-2015SE29040

PATIENT
  Age: 64 Year
  Sex: Female
  Weight: 78 kg

DRUGS (44)
  1. GLIPIZIDE ER [Concomitant]
     Active Substance: GLIPIZIDE
     Route: 048
  2. LORAZEPAM. [Concomitant]
     Active Substance: LORAZEPAM
     Indication: NAUSEA
     Dosage: 1 DF EVERY SIX HOURS AS NEEDED
     Route: 048
  3. VENLAFAXINE [Concomitant]
     Active Substance: VENLAFAXINE HYDROCHLORIDE
     Route: 048
  4. FULVESTRANT [Suspect]
     Active Substance: FULVESTRANT
     Route: 030
     Dates: start: 201408, end: 201409
  5. FLEXERIL [Concomitant]
     Active Substance: CYCLOBENZAPRINE HYDROCHLORIDE
     Indication: MUSCLE SPASMS
     Dosage: 10 MG THREE TIMES A DAY AS NEEDED
     Route: 048
  6. PEPCID [Concomitant]
     Active Substance: FAMOTIDINE
     Route: 048
  7. MILK OF MAGNESIA [Concomitant]
     Active Substance: MAGNESIUM HYDROXIDE
     Dosage: 400 MG/5 ML, 30 ML ONCE DAILY AS NEEDED
     Route: 048
  8. MS CONTIN [Concomitant]
     Active Substance: MORPHINE SULFATE
     Route: 048
  9. ZOFRAN ODT [Concomitant]
     Active Substance: ONDANSETRON HYDROCHLORIDE
     Indication: VOMITING
     Dosage: 1 TABLET EVERY EIGHT HOURS AS NEEDED
     Route: 048
  10. PROMETHAZINE [Concomitant]
     Active Substance: PROMETHAZINE\PROMETHAZINE HYDROCHLORIDE
     Indication: VOMITING
     Route: 048
  11. VANCOMYCIN [Concomitant]
     Active Substance: VANCOMYCIN
     Route: 048
  12. CAPECITABINE. [Suspect]
     Active Substance: CAPECITABINE
     Route: 048
     Dates: start: 201409, end: 201502
  13. DENOSUMAB [Suspect]
     Active Substance: DENOSUMAB
     Route: 065
     Dates: start: 20140731
  14. DALTEPARIN [Concomitant]
     Active Substance: DALTEPARIN
     Dosage: 15000 UNIT ANTI-XA UNITS/0.6ML, ONCE DAILY
     Route: 058
  15. GABAPENTIN. [Concomitant]
     Active Substance: GABAPENTIN
     Route: 048
  16. HYDROCORTISONE. [Concomitant]
     Active Substance: HYDROCORTISONE
     Dosage: 2 TO 4 TIMES DAILY AS NEEDED
     Route: 061
  17. PALBOCICLIB [Concomitant]
     Active Substance: PALBOCICLIB
     Route: 048
  18. PROMETHAZINE [Concomitant]
     Active Substance: PROMETHAZINE\PROMETHAZINE HYDROCHLORIDE
     Indication: VOMITING
     Dosage: 12.5 MG RECTALLY FOUR TMES DAILY AS NEEDED
     Route: 054
  19. SUMATRIPTAN. [Concomitant]
     Active Substance: SUMATRIPTAN
     Route: 048
  20. ZOFRAN ODT [Concomitant]
     Active Substance: ONDANSETRON HYDROCHLORIDE
     Indication: NAUSEA
     Dosage: 1 TABLET EVERY EIGHT HOURS AS NEEDED
     Route: 048
  21. COMPAZINE [Concomitant]
     Active Substance: PROCHLORPERAZINE MALEATE
     Indication: VOMITING
     Route: 048
  22. EXEMESTANE. [Suspect]
     Active Substance: EXEMESTANE
     Route: 065
     Dates: start: 201409
  23. ENOXAPARIN [Concomitant]
     Active Substance: ENOXAPARIN
     Dates: start: 201410
  24. PERCOCET [Concomitant]
     Active Substance: ACETAMINOPHEN\OXYCODONE HYDROCHLORIDE
     Dosage: 5-325 MG 2 DF EVERY FOUR HOURS, NOT TO EXCEED 10 TABLETS PER ANY 24 HOUR PERIOD
     Route: 048
  25. POTASSIUM CHLORIDE. [Concomitant]
     Active Substance: POTASSIUM CHLORIDE
     Route: 048
  26. EXEMESTANE. [Suspect]
     Active Substance: EXEMESTANE
     Route: 065
     Dates: start: 201502
  27. TAXOTERE [Concomitant]
     Active Substance: DOCETAXEL
     Indication: NEOADJUVANT THERAPY
     Dates: start: 200602, end: 200604
  28. TAXOL [Concomitant]
     Active Substance: PACLITAXEL
     Dates: start: 200605, end: 200606
  29. ATENOLOL. [Concomitant]
     Active Substance: ATENOLOL
     Route: 048
  30. METFORMIN [Concomitant]
     Active Substance: METFORMIN HYDROCHLORIDE
     Route: 048
  31. LASIX [Concomitant]
     Active Substance: FUROSEMIDE
  32. PROMETHAZINE [Concomitant]
     Active Substance: PROMETHAZINE\PROMETHAZINE HYDROCHLORIDE
     Indication: NAUSEA
     Route: 048
  33. AMBIEN [Concomitant]
     Active Substance: ZOLPIDEM TARTRATE
     Route: 048
  34. FLUOCINONIDE. [Concomitant]
     Active Substance: FLUOCINONIDE
     Route: 061
  35. FUROSEMIDE. [Concomitant]
     Active Substance: FUROSEMIDE
     Route: 048
  36. POLYETHYLENE GLYCOL [Concomitant]
     Active Substance: POLYETHYLENE GLYCOLS
     Dosage: 17 GM/DOSE, ONCE DAILY IN THE MORNING
     Route: 048
  37. PROMETHAZINE [Concomitant]
     Active Substance: PROMETHAZINE\PROMETHAZINE HYDROCHLORIDE
     Indication: NAUSEA
     Dosage: 12.5 MG RECTALLY FOUR TMES DAILY AS NEEDED
     Route: 054
  38. COMPAZINE [Concomitant]
     Active Substance: PROCHLORPERAZINE MALEATE
     Indication: NAUSEA
     Route: 048
  39. EXEMESTANE. [Suspect]
     Active Substance: EXEMESTANE
     Route: 065
     Dates: start: 201407, end: 201409
  40. IBRANCE [Concomitant]
     Active Substance: PALBOCICLIB
     Dosage: 125 MG ,28 DAY SUPPLY
  41. LETROZOLE. [Concomitant]
     Active Substance: LETROZOLE
     Dates: start: 200608, end: 201108
  42. ATORVASTATIN [Concomitant]
     Active Substance: ATORVASTATIN
     Route: 048
  43. DOCUSATE SODIUM. [Concomitant]
     Active Substance: DOCUSATE SODIUM
     Route: 048
  44. SENNA [Concomitant]
     Active Substance: SENNA LEAF\SENNOSIDES\SENNOSIDES A AND B
     Route: 048

REACTIONS (3)
  - Embolic stroke [Unknown]
  - Cardiac valve disease [Unknown]
  - Clostridium difficile colitis [Unknown]
